FAERS Safety Report 25595020 (Version 1)
Quarter: 2025Q3

REPORT INFORMATION
  Report Type: Report from Study
  Country: US (occurrence: US)
  Receive Date: 20250723
  Receipt Date: 20250723
  Transmission Date: 20251021
  Serious: Yes (Other)
  Sender: ALEXION PHARMACEUTICALS
  Company Number: US-AstraZeneca-CH-00912245A

PATIENT
  Sex: Male

DRUGS (1)
  1. ACALABRUTINIB [Suspect]
     Active Substance: ACALABRUTINIB
     Indication: Waldenstrom^s macroglobulinaemia
     Dosage: 100 MILLIGRAM, Q12H

REACTIONS (4)
  - Chronic kidney disease [Unknown]
  - Ocular hypertension [Unknown]
  - Accidental overdose [Unknown]
  - Contusion [Unknown]
